FAERS Safety Report 7914415-8 (Version None)
Quarter: 2011Q4

REPORT INFORMATION
  Report Type: 
  Country: None (occurrence: None)
  Receive Date: 20111115
  Receipt Date: 20111110
  Transmission Date: 20120403
  Serious: No
  Sender: FDA-Public Use
  Company Number: US-PFIZER INC-2011251978

PATIENT
  Sex: Female
  Weight: 81 kg

DRUGS (2)
  1. METAXALONE [Suspect]
     Indication: MYALGIA
     Dosage: 400 MG, 2X/DAY
     Dates: start: 20111017
  2. SYNTHROID [Concomitant]

REACTIONS (1)
  - PRURITUS [None]
